FAERS Safety Report 7536775-2 (Version None)
Quarter: 2011Q2

REPORT INFORMATION
  Report Type: 
  Country: None (occurrence: None)
  Receive Date: 20110608
  Receipt Date: 20110608
  Transmission Date: 20111010
  Serious: Yes (Hospitalization)
  Sender: FDA-Public Use
  Company Number: None

PATIENT
  Sex: Female
  Weight: 72.5755 kg

DRUGS (2)
  1. LUNESTA [Suspect]
     Indication: INSOMNIA
     Dosage: ONE 3 MG TABLET NIGHTLY PO
     Route: 048
     Dates: start: 20110521, end: 20110522
  2. LUNESTA [Suspect]
     Indication: INSOMNIA
     Dosage: ONE 3 MG TABLET NIGHTLY PO
     Route: 048
     Dates: start: 20110605, end: 20110606

REACTIONS (5)
  - DISORIENTATION [None]
  - CONFUSIONAL STATE [None]
  - RASH PRURITIC [None]
  - HALLUCINATION [None]
  - SIMILAR REACTION ON PREVIOUS EXPOSURE TO DRUG [None]
